FAERS Safety Report 9766872 (Version 1)
Quarter: 2013Q4

REPORT INFORMATION
  Report Type: Spontaneous
  Country: US (occurrence: US)
  Receive Date: 20131217
  Receipt Date: 20131217
  Transmission Date: 20140711
  Serious: No
  Sender: FDA-Public Use
  Company Number: US-BIOGENIDEC-2013BI118845

PATIENT
  Age: 40 Year
  Sex: Female

DRUGS (7)
  1. TECFIDERA [Suspect]
     Indication: MULTIPLE SCLEROSIS
     Route: 048
     Dates: start: 20130430
  2. BACLOFEN [Concomitant]
  3. AMITRIPTYLINE [Concomitant]
  4. PREDNISONE [Concomitant]
  5. NADOLOL [Concomitant]
  6. CYMBALTA [Concomitant]
  7. DIVALPROEX [Concomitant]

REACTIONS (1)
  - Headache [Not Recovered/Not Resolved]
